FAERS Safety Report 21908374 (Version 2)
Quarter: 2023Q1

REPORT INFORMATION
  Report Type: Spontaneous
  Country: US (occurrence: US)
  Receive Date: 20230125
  Receipt Date: 20230202
  Transmission Date: 20230418
  Serious: No
  Sender: FDA-Public Use
  Company Number: US-INSUD PHARMA-2301US00351

PATIENT

DRUGS (1)
  1. PROGESTERONE [Suspect]
     Active Substance: PROGESTERONE
     Indication: Product used for unknown indication
     Dosage: UNK
     Route: 048
     Dates: start: 202210, end: 20230112

REACTIONS (12)
  - Back pain [Recovering/Resolving]
  - Pain in extremity [Recovering/Resolving]
  - Muscle spasms [Recovering/Resolving]
  - Muscle tightness [Recovering/Resolving]
  - Discomfort [Recovering/Resolving]
  - Gastrooesophageal reflux disease [Recovering/Resolving]
  - Nausea [Recovering/Resolving]
  - Decreased appetite [Recovering/Resolving]
  - Weight decreased [Recovering/Resolving]
  - Insomnia [Recovering/Resolving]
  - Blood bilirubin increased [Unknown]
  - Inappropriate schedule of product administration [Unknown]
